FAERS Safety Report 18348770 (Version 1)
Quarter: 2020Q4

REPORT INFORMATION
  Report Type: Spontaneous
  Country: US (occurrence: US)
  Receive Date: 20201005
  Receipt Date: 20201005
  Transmission Date: 20210114
  Serious: No
  Sender: FDA-Public Use
  Company Number: None

PATIENT
  Age: 31 Year
  Sex: Female

DRUGS (1)
  1. HUMIRA [Suspect]
     Active Substance: ADALIMUMAB
     Indication: HIDRADENITIS
     Dosage: ?          OTHER FREQUENCY:DAYOREADDAY15;?
     Route: 058
     Dates: end: 20200923

REACTIONS (2)
  - Pleurisy [None]
  - Dizziness [None]

NARRATIVE: CASE EVENT DATE: 20200714
